FAERS Safety Report 5216669-8 (Version None)
Quarter: 2006Q4

REPORT INFORMATION
  Report Type: 
  Country: None (occurrence: None)
  Receive Date: 20061130
  Receipt Date: 20060526
  Transmission Date: 20070319
  Serious: Yes (Hospitalization)
  Sender: FDA-Public Use
  Company Number: US_0510123064

PATIENT
  Age: 65 Year
  Sex: Female
  Weight: 95.2 kg

DRUGS (7)
  1. ZYPREXA [Suspect]
     Dosage: SEE IMAGE
     Dates: start: 20020101, end: 20020501
  2. ZYPREXA [Suspect]
     Dosage: SEE IMAGE
     Dates: start: 20040901, end: 20041201
  3. ZYPREXA [Suspect]
     Dosage: SEE IMAGE
     Dates: start: 20050201, end: 20050301
  4. DEPAKOTE [Concomitant]
  5. MYKROX (METOLAZONE) [Concomitant]
  6. SEROQUEL [Concomitant]
  7. WELLBUTRIN [Concomitant]

REACTIONS (4)
  - DIABETES MELLITUS [None]
  - DIABETIC FOOT [None]
  - VISION BLURRED [None]
  - WEIGHT DECREASED [None]
